FAERS Safety Report 9517248 (Version 2)
Quarter: 2013Q4

REPORT INFORMATION
  Report Type: Spontaneous
  Country: SE (occurrence: SE)
  Receive Date: 20130911
  Receipt Date: 20131018
  Transmission Date: 20140711
  Serious: Yes (Other)
  Sender: FDA-Public Use
  Company Number: SE-BRISTOL-MYERS SQUIBB COMPANY-19352731

PATIENT
  Sex: 0

DRUGS (2)
  1. NULOJIX [Suspect]
     Indication: RENAL TRANSPLANT
  2. NULOJIX [Suspect]
     Indication: PANCREAS TRANSPLANT

REACTIONS (3)
  - Hypogammaglobulinaemia [Unknown]
  - Graft versus host disease [Unknown]
  - Off label use [Unknown]
